FAERS Safety Report 6967920-5 (Version None)
Quarter: 2010Q3

REPORT INFORMATION
  Report Type: 
  Country: None (occurrence: None)
  Receive Date: 20100907
  Receipt Date: 20100826
  Transmission Date: 20110219
  Serious: Yes (Other)
  Sender: FDA-Public Use
  Company Number: US-PFIZER INC-2010107846

PATIENT
  Age: 42 Year
  Sex: Male
  Weight: 77.7 kg

DRUGS (1)
  1. SUNITINIB MALATE [Suspect]
     Indication: ANAL CANCER METASTATIC
     Dosage: 37.5 MG, QD OF WEEKS 1-4
     Route: 048
     Dates: start: 20100714, end: 20100727

REACTIONS (1)
  - WOUND COMPLICATION [None]
